FAERS Safety Report 13277546 (Version 1)
Quarter: 2017Q1

REPORT INFORMATION
  Report Type: Spontaneous
  Country: US (occurrence: US)
  Receive Date: 20170228
  Receipt Date: 20170228
  Transmission Date: 20170428
  Serious: No
  Sender: FDA-Public Use
  Company Number: US-BAYER-2017-034878

PATIENT
  Sex: Female

DRUGS (1)
  1. MIRENA [Suspect]
     Active Substance: LEVONORGESTREL
     Indication: PSORIASIS
     Dosage: 20 MCG/24HR, CONT
     Route: 015

REACTIONS (4)
  - Off label use [None]
  - Insomnia [None]
  - Arthralgia [Recovering/Resolving]
  - Depression [None]
